FAERS Safety Report 21552655 (Version 4)
Quarter: 2022Q4

REPORT INFORMATION
  Report Type: Spontaneous
  Country: US (occurrence: US)
  Receive Date: 20221104
  Receipt Date: 20221220
  Transmission Date: 20230113
  Serious: Yes (Life-Threatening, Hospitalization, Other)
  Sender: FDA-Public Use
  Company Number: US-MLMSERVICE-20221018-3867886-1

PATIENT
  Age: 39 Year
  Sex: Male
  Weight: 117.5 kg

DRUGS (11)
  1. LOPERAMIDE [Suspect]
     Active Substance: LOPERAMIDE
     Indication: Back pain
     Dosage: 800 MILLIGRAM, ONCE A DAY (DOSE INCREASED)
     Route: 048
  2. LOPERAMIDE [Suspect]
     Active Substance: LOPERAMIDE
     Indication: Drug use disorder
     Dosage: ONCE A DAY
     Route: 048
  3. LOPERAMIDE [Suspect]
     Active Substance: LOPERAMIDE
     Dosage: 2 MILLIGRAM, ONCE A DAY
     Route: 048
  4. ASCORBIC ACID [Concomitant]
     Active Substance: ASCORBIC ACID
     Indication: Constipation
     Dosage: UNK
     Route: 065
  5. BUPRENORPHINE [Concomitant]
     Active Substance: BUPRENORPHINE
     Indication: Withdrawal syndrome
     Dosage: 32 MILLIGRAM
     Route: 060
  6. BUPRENORPHINE [Concomitant]
     Active Substance: BUPRENORPHINE
     Indication: Drug use disorder
     Dosage: 8 MILLIGRAM, 3 TIMES A DAY
     Route: 060
  7. BUPRENORPHINE [Concomitant]
     Active Substance: BUPRENORPHINE
     Indication: Withdrawal syndrome
     Dosage: 1.8 MILLIGRAM
     Route: 042
  8. DIAZEPAM [Concomitant]
     Active Substance: DIAZEPAM
     Indication: Withdrawal syndrome
     Dosage: UNK
     Route: 065
  9. CLONIDINE [Concomitant]
     Active Substance: CLONIDINE
     Indication: Withdrawal syndrome
     Dosage: UNK
     Route: 065
  10. MAGNESIUM CITRATE [Concomitant]
     Active Substance: MAGNESIUM CITRATE
     Indication: Constipation
     Dosage: UNK
     Route: 065
  11. ISOPROTERENOL [Concomitant]
     Active Substance: ISOPROTERENOL
     Indication: Withdrawal syndrome
     Dosage: UNK
     Route: 065

REACTIONS (9)
  - Ventricular tachycardia [Recovered/Resolved]
  - Cardiac arrest [Recovered/Resolved]
  - Arrhythmia [Recovered/Resolved]
  - Ventricular fibrillation [Recovered/Resolved]
  - Intentional product misuse [Recovered/Resolved]
  - Drug withdrawal syndrome [Recovered/Resolved]
  - Drug level increased [Recovered/Resolved]
  - Drug use disorder [Recovered/Resolved]
  - Intentional overdose [Recovered/Resolved]
